FAERS Safety Report 20757573 (Version 1)
Quarter: 2022Q2

REPORT INFORMATION
  Report Type: Report from Study
  Country: CO (occurrence: CO)
  Receive Date: 20220427
  Receipt Date: 20220427
  Transmission Date: 20220721
  Serious: Yes (Death, Other)
  Sender: FDA-Public Use
  Company Number: CO-BRISTOL-MYERS SQUIBB COMPANY-2022-025909

PATIENT
  Age: 77 Year
  Sex: Female
  Weight: 58 kg

DRUGS (1)
  1. ORENCIA [Suspect]
     Active Substance: ABATACEPT
     Indication: Rheumatoid arthritis
     Dosage: 500 MG/ML
     Route: 042
     Dates: start: 20160313

REACTIONS (2)
  - Death [Fatal]
  - Off label use [Unknown]
